FAERS Safety Report 5464405-2 (Version None)
Quarter: 2007Q3

REPORT INFORMATION
  Report Type: 
  Country: None (occurrence: None)
  Receive Date: 20070921
  Receipt Date: 20070910
  Transmission Date: 20080115
  Serious: Yes (Hospitalization)
  Sender: FDA-Public Use
  Company Number: JP-ROCHE-509487

PATIENT
  Age: 49 Year
  Sex: Female

DRUGS (7)
  1. TICLOPIDINE HCL [Suspect]
     Route: 048
     Dates: start: 20060407, end: 20070306
  2. ASPIRIN [Suspect]
     Route: 048
     Dates: start: 20060407, end: 20070306
  3. DIOVAN [Concomitant]
     Indication: HYPERTENSION
     Route: 048
     Dates: start: 20060407
  4. ADALAT [Concomitant]
     Indication: HYPERTENSION
     Route: 048
     Dates: start: 20060407
  5. ARTIST [Concomitant]
     Indication: HYPERTENSION
     Route: 048
     Dates: start: 20070407
  6. UNSPECIFIED DRUG [Concomitant]
     Indication: HYPERLIPIDAEMIA
     Route: 048
     Dates: start: 20060407
  7. FAMOTIDINE [Concomitant]
     Indication: HAEMORRHAGE PROPHYLAXIS
     Route: 048
     Dates: start: 20060407

REACTIONS (5)
  - ALTERED STATE OF CONSCIOUSNESS [None]
  - ANAEMIA [None]
  - CEREBRAL INFARCTION [None]
  - DYSARTHRIA [None]
  - MENORRHAGIA [None]
